FAERS Safety Report 20378071 (Version 2)
Quarter: 2022Q1

REPORT INFORMATION
  Report Type: Spontaneous
  Country: CH (occurrence: CH)
  Receive Date: 20220126
  Receipt Date: 20220224
  Transmission Date: 20220424
  Serious: Yes (Other)
  Sender: FDA-Public Use
  Company Number: CH-SA-SAC20220114000331

PATIENT
  Age: 30 Year
  Sex: Female

DRUGS (1)
  1. CERDELGA [Suspect]
     Active Substance: ELIGLUSTAT
     Dosage: 84 MG, BID
     Dates: start: 202111, end: 20220106

REACTIONS (8)
  - Hypersensitivity [Recovered/Resolved]
  - Flushing [Recovered/Resolved]
  - Urticaria [Recovered/Resolved]
  - Angioedema [Recovered/Resolved]
  - Platelet count abnormal [Recovering/Resolving]
  - Red blood cell count abnormal [Recovering/Resolving]
  - Haemoglobin abnormal [Recovering/Resolving]
  - White blood cell count abnormal [Recovering/Resolving]

NARRATIVE: CASE EVENT DATE: 20220105
